FAERS Safety Report 5072414-0 (Version None)
Quarter: 2006Q3

REPORT INFORMATION
  Report Type: 
  Country: None (occurrence: None)
  Receive Date: 20060710
  Receipt Date: 20050825
  Transmission Date: 20061208
  Serious: Yes (Other)
  Sender: FDA-Public Use
  Company Number: 2005US001201

PATIENT
  Age: 65 Year
  Sex: Male
  Weight: 89.3 kg

DRUGS (2)
  1. ADENOSCAN [Suspect]
     Indication: SCAN MYOCARDIAL PERFUSION
     Dosage: SEE IMAGE
     Route: 042
     Dates: start: 20050823, end: 20050823
  2. CARDIOLITE [Concomitant]

REACTIONS (1)
  - CARDIAC ARREST [None]
